FAERS Safety Report 6023233-X (Version None)
Quarter: 2008Q4

REPORT INFORMATION
  Report Type: 
  Country: None (occurrence: None)
  Receive Date: 20081223
  Receipt Date: 20081211
  Transmission Date: 20090506
  Serious: Yes (Other)
  Sender: FDA-Public Use
  Company Number: 108466

PATIENT
  Age: 2 Year
  Sex: Male

DRUGS (3)
  1. IBUPROFEN [Suspect]
     Dosage: 50MG/ONCE/ORAL
     Route: 048
     Dates: start: 20081116, end: 20081116
  2. CALPOL PRN [Concomitant]
  3. UNSPECIFIED ASTHMA INHALER PRN [Concomitant]

REACTIONS (1)
  - HYPERSENSITIVITY [None]
